FAERS Safety Report 5258697-2 (Version None)
Quarter: 2007Q1

REPORT INFORMATION
  Report Type: 
  Country: None (occurrence: None)
  Receive Date: 20061117
  Receipt Date: 20060403
  Transmission Date: 20070707
  Serious: Yes (Other)
  Sender: FDA-Public Use
  Company Number: US-JNJFOC-20060203049

PATIENT
  Age: 64 Year
  Sex: Female
  Weight: 42.6381 kg

DRUGS (12)
  1. LEVAQUIN [Suspect]
     Indication: SINUSITIS
     Dosage: 750 MG, 1 IN 1 DAY, ORAL
     Route: 048
     Dates: start: 20060112, end: 20060116
  2. ASPIRIN [Concomitant]
  3. ATENOLOL [Concomitant]
  4. CALCIUM (CALCIUM) [Concomitant]
  5. PREMARIN [Concomitant]
  6. LISINOPRIL [Concomitant]
  7. OMEGA 3 FATTY FISH OIL (FISH OIL) [Concomitant]
  8. ACTONEL [Concomitant]
  9. ZOLOFT [Concomitant]
  10. SPIRONOLACTONE [Concomitant]
  11. VITAMIN D [Concomitant]
  12. VITAMIN E [Concomitant]

REACTIONS (1)
  - TENDONITIS [None]
